FAERS Safety Report 8993370 (Version 1)
Quarter: 2013Q1

REPORT INFORMATION
  Report Type: Report from Study
  Country: DE (occurrence: DE)
  Receive Date: 20130102
  Receipt Date: 20130102
  Transmission Date: 20140127
  Serious: Yes (Hospitalization)
  Sender: FDA-Public Use
  Company Number: DE-BAXTER-2012BAX028588

PATIENT
  Age: 33 Year
  Sex: Female
  Weight: 48 kg

DRUGS (3)
  1. ENDOXAN 1G [Suspect]
     Indication: BREAST CANCER
     Route: 042
     Dates: start: 20121207
  2. EPIRUBICIN [Suspect]
     Indication: BREAST CANCER
     Route: 040
     Dates: start: 20121207
  3. FLUOROURACIL [Suspect]
     Indication: BREAST CANCER
     Route: 040
     Dates: start: 20121207

REACTIONS (1)
  - General physical health deterioration [Not Recovered/Not Resolved]
